FAERS Safety Report 6557612-9 (Version None)
Quarter: 2010Q1

REPORT INFORMATION
  Report Type: 
  Country: None (occurrence: None)
  Receive Date: 20100129
  Receipt Date: 20100119
  Transmission Date: 20100710
  Serious: Yes (Other)
  Sender: FDA-Public Use
  Company Number: FR-JNJFOC-20080302938

PATIENT
  Sex: Male
  Weight: 2.51 kg

DRUGS (8)
  1. PREZISTA [Suspect]
     Indication: DRUG EXPOSURE DURING PREGNANCY
  2. PREZISTA [Suspect]
  3. NORVIR [Suspect]
     Indication: DRUG EXPOSURE DURING PREGNANCY
  4. VIREAD [Suspect]
     Indication: DRUG EXPOSURE DURING PREGNANCY
  5. ZIAGEN [Suspect]
     Indication: DRUG EXPOSURE DURING PREGNANCY
  6. KIVEXA [Suspect]
     Indication: DRUG EXPOSURE DURING PREGNANCY
     Route: 015
  7. REYATAZ [Suspect]
     Indication: DRUG EXPOSURE DURING PREGNANCY
  8. TELZIR [Suspect]
     Indication: DRUG EXPOSURE DURING PREGNANCY

REACTIONS (1)
  - PREMATURE BABY [None]
